FAERS Safety Report 4944546-6 (Version None)
Quarter: 2006Q1

REPORT INFORMATION
  Report Type: 
  Country: None (occurrence: None)
  Receive Date: 20060113
  Receipt Date: 20041230
  Transmission Date: 20060701
  Serious: Yes (Other)
  Sender: FDA-Public Use
  Company Number: HQWYE214817JUL04

PATIENT
  Age: 57 Year
  Sex: Female
  Weight: 74.91 kg

DRUGS (4)
  1. PREMPRO [Suspect]
     Indication: HORMONE REPLACEMENT THERAPY
     Dosage: ORAL
     Route: 048
     Dates: start: 19940101
  2. PREMARIN [Suspect]
     Indication: HORMONE REPLACEMENT THERAPY
     Dosage: ORAL
     Route: 048
     Dates: start: 19940101
  3. ACETYLSALICYLIC ACID SRT [Concomitant]
  4. TOPROL-XL [Concomitant]

REACTIONS (2)
  - BREAST CANCER [None]
  - LICHEN PLANUS [None]
